FAERS Safety Report 18612998 (Version 1)
Quarter: 2020Q4

REPORT INFORMATION
  Report Type: Spontaneous
  Country: US (occurrence: US)
  Receive Date: 20201214
  Receipt Date: 20201214
  Transmission Date: 20210114
  Serious: Yes (Other)
  Sender: FDA-Public Use
  Company Number: US-NOVOPROD-764836

PATIENT
  Sex: Female

DRUGS (2)
  1. LEVEMIR [Suspect]
     Active Substance: INSULIN DETEMIR
     Indication: PRODUCT USED FOR UNKNOWN INDICATION
     Dosage: 12 IU
     Route: 065
     Dates: start: 2012
  2. LEVEMIR [Suspect]
     Active Substance: INSULIN DETEMIR
     Dosage: UNK
     Route: 065

REACTIONS (1)
  - Hypoglycaemic unconsciousness [Unknown]
